FAERS Safety Report 10040315 (Version 2)
Quarter: 2014Q1

REPORT INFORMATION
  Report Type: Spontaneous
  Country: US (occurrence: US)
  Receive Date: 20140327
  Receipt Date: 20140327
  Transmission Date: 20141002
  Serious: Yes (Hospitalization)
  Sender: FDA-Public Use
  Company Number: US-B.I. PHARMACEUTICALS,INC./RIDGEFIELD-2013-BI-27280BP

PATIENT
  Sex: Female
  Weight: 68.49 kg

DRUGS (16)
  1. PRADAXA [Suspect]
     Indication: ATRIAL FIBRILLATION
     Dosage: 300 MG
     Route: 065
     Dates: start: 20110224, end: 20110526
  2. PRADAXA [Suspect]
     Indication: ANTICOAGULANT THERAPY
  3. ASPIRIN [Suspect]
     Indication: ANTICOAGULANT THERAPY
     Dosage: 81 MG
     Route: 065
     Dates: end: 20110526
  4. GASX [Concomitant]
     Route: 065
  5. CELEXA [Concomitant]
     Dosage: 10 MG
     Route: 065
  6. BENAZEPRIL [Concomitant]
     Route: 065
  7. NAMENDA [Concomitant]
     Dosage: 20 MG
     Route: 065
     Dates: start: 2008
  8. CARVEDILOL [Concomitant]
     Route: 065
     Dates: start: 2007
  9. PRAVASTATIN [Concomitant]
     Dosage: 40 MG
     Route: 065
     Dates: start: 2008
  10. SINGULAIR [Concomitant]
     Dosage: 10 MG
     Route: 065
  11. SOTALOL [Concomitant]
     Dosage: 40 MG
     Route: 065
  12. LORAZEPAM [Concomitant]
     Route: 065
     Dates: start: 2008
  13. EXFORGE [Concomitant]
     Route: 065
     Dates: start: 2008
  14. PANTOPRAZOLE [Concomitant]
     Route: 065
     Dates: start: 2008
  15. FUROSEMIDE [Concomitant]
     Route: 065
     Dates: start: 2003
  16. KLOR-CON [Concomitant]
     Route: 065
     Dates: start: 2003, end: 2012

REACTIONS (3)
  - Gastrointestinal haemorrhage [Unknown]
  - Anaemia [Unknown]
  - Coagulopathy [Recovered/Resolved]
